FAERS Safety Report 8968875 (Version 1)
Quarter: 2012Q4

REPORT INFORMATION
  Report Type: 
  Country: NZ (occurrence: NZ)
  Receive Date: 20121217
  Receipt Date: 20121217
  Transmission Date: 20130627
  Serious: Yes (Hospitalization, Other)
  Sender: FDA-Public Use
  Company Number: NZ-ROXANE LABORATORIES, INC.-2012-RO-02553RO

PATIENT
  Age: 83 Year
  Sex: Male

DRUGS (6)
  1. PREDNISONE [Suspect]
     Indication: POLYARTERITIS NODOSA
     Dosage: 5 mg
     Route: 048
  2. METHOTREXATE [Suspect]
     Indication: RHEUMATOID ARTHRITIS
     Route: 048
  3. ALENDRONATE [Concomitant]
  4. OMEPRAZOLE [Concomitant]
     Dosage: 20 mg
  5. FOLIC ACID [Concomitant]
  6. PARACETAMOL [Concomitant]

REACTIONS (3)
  - Monocytosis [Recovered/Resolved]
  - Dermatitis [Recovered/Resolved]
  - Neutrophilia [Recovered/Resolved]
